FAERS Safety Report 13195888 (Version 3)
Quarter: 2017Q2

REPORT INFORMATION
  Report Type: Spontaneous
  Country: DZ (occurrence: DZ)
  Receive Date: 20170208
  Receipt Date: 20170403
  Transmission Date: 20170830
  Serious: Yes (Death, Life-Threatening, Hospitalization)
  Sender: FDA-Public Use
  Company Number: DZ-ROCHE-1890179

PATIENT
  Age: 61 Year
  Sex: Male

DRUGS (1)
  1. METALYSE [Suspect]
     Active Substance: TENECTEPLASE
     Indication: ACUTE MYOCARDIAL INFARCTION
     Route: 042
     Dates: start: 20170121

REACTIONS (1)
  - Treatment failure [Fatal]
